FAERS Safety Report 6115662-0 (Version None)
Quarter: 2009Q1

REPORT INFORMATION
  Report Type: 
  Country: None (occurrence: None)
  Receive Date: 20090313
  Receipt Date: 20090309
  Transmission Date: 20090719
  Serious: No
  Sender: FDA-Public Use
  Company Number: US-B.I. PHARMACEUTICALS,INC./RIDGEFIELD-2009-BP-02964BP

PATIENT
  Sex: Female

DRUGS (6)
  1. SPIRIVA [Suspect]
     Indication: EMPHYSEMA
     Route: 055
     Dates: start: 20060201
  2. ADVAIR HFA [Suspect]
     Indication: EMPHYSEMA
  3. VICODIN [Concomitant]
     Indication: PAIN
     Dates: start: 19960101
  4. SIMVASTATIN [Concomitant]
     Indication: BLOOD CHOLESTEROL INCREASED
     Dates: start: 20060101
  5. METOPROLOL TARTRATE [Concomitant]
     Indication: HYPERTENSION
     Dates: start: 20060101
  6. CALCIUM [Concomitant]
     Indication: OSTEOPENIA
     Dates: start: 20050101

REACTIONS (3)
  - ASTHENIA [None]
  - DYSPNOEA [None]
  - INCORRECT DOSE ADMINISTERED [None]
